FAERS Safety Report 9194066 (Version 2)
Quarter: 2013Q2

REPORT INFORMATION
  Report Type: Spontaneous
  Country: US (occurrence: US)
  Receive Date: 20130327
  Receipt Date: 20130422
  Transmission Date: 20140414
  Serious: Yes (Other)
  Sender: FDA-Public Use
  Company Number: US-B.I. PHARMACEUTICALS,INC./RIDGEFIELD-2013-BI-08083BP

PATIENT
  Age: 91 Year
  Sex: Male
  Weight: 63.49 kg

DRUGS (6)
  1. PRADAXA [Suspect]
     Indication: ATRIAL FIBRILLATION
     Dosage: 150 MG
     Route: 048
     Dates: start: 20110815, end: 20130319
  2. COUMADIN [Concomitant]
     Indication: ATRIAL FIBRILLATION
     Dates: start: 200401, end: 20110815
  3. LISINOPRIL [Concomitant]
     Indication: HYPERTENSION
     Dosage: 5 MG
     Dates: start: 20121224
  4. METFORMIN [Concomitant]
     Indication: DIABETES MELLITUS
     Dosage: 500 U
     Dates: start: 20121116
  5. NAMENDA [Concomitant]
     Indication: DEMENTIA
     Dosage: 10 MG
     Dates: start: 201211
  6. SYNTHROID [Concomitant]
     Indication: HYPOTHYROIDISM
     Dosage: 0.025 MG
     Dates: start: 20100310

REACTIONS (4)
  - Basal ganglia haemorrhage [Recovered/Resolved]
  - Dizziness [Recovered/Resolved]
  - Gait disturbance [Recovered/Resolved]
  - Cerebral haemorrhage [Not Recovered/Not Resolved]
